FAERS Safety Report 9549508 (Version 1)
Quarter: 2013Q3

REPORT INFORMATION
  Report Type: Spontaneous
  Country: FR (occurrence: None)
  Receive Date: 20130919
  Receipt Date: 20130919
  Transmission Date: 20140515
  Serious: Yes (Hospitalization, Other)
  Sender: FDA-Public Use
  Company Number: FR-ZYDUS-002235

PATIENT
  Age: 64 Year
  Sex: Female

DRUGS (1)
  1. ROPINIROLE [Suspect]
     Dosage: 3MG 1 DAY

REACTIONS (7)
  - Depression [None]
  - Weight increased [None]
  - Compulsive shopping [None]
  - Compulsions [None]
  - Restless legs syndrome [None]
  - Condition aggravated [None]
  - Drug withdrawal syndrome [None]
